FAERS Safety Report 5655538-6 (Version None)
Quarter: 2008Q1

REPORT INFORMATION
  Report Type: 
  Country: None (occurrence: None)
  Receive Date: 20080307
  Receipt Date: 20080229
  Transmission Date: 20080703
  Serious: Yes (Other)
  Sender: FDA-Public Use
  Company Number: US-SANOFI-SYNTHELABO-A03200800192

PATIENT
  Sex: Male

DRUGS (8)
  1. ELOXATIN [Interacting]
     Indication: COLON CANCER METASTATIC
     Route: 042
     Dates: start: 20071212, end: 20071212
  2. COMPAZINE [Concomitant]
     Indication: NAUSEA
     Route: 065
     Dates: start: 20071030
  3. AMBIEN [Concomitant]
     Indication: SLEEP DISORDER THERAPY
     Route: 065
  4. LEUCOVORIN CALCIUM [Suspect]
     Indication: COLON CANCER METASTATIC
     Dosage: UNK
     Route: 065
  5. BEVACIZUMAB [Suspect]
     Indication: COLON CANCER METASTATIC
     Dosage: UNK
     Route: 065
  6. FLUOROURACIL [Suspect]
     Indication: COLON CANCER METASTATIC
     Dosage: UNK
     Route: 065
  7. ATIVAN [Concomitant]
     Indication: NAUSEA
     Route: 065
     Dates: start: 20071030
  8. ATIVAN [Concomitant]
     Indication: VOMITING
     Route: 065
     Dates: start: 20071030

REACTIONS (3)
  - CHILLS [None]
  - HYPERHIDROSIS [None]
  - HYPOTHERMIA [None]
